FAERS Safety Report 6956511-8 (Version None)
Quarter: 2010Q3

REPORT INFORMATION
  Report Type: 
  Country: None (occurrence: None)
  Receive Date: 20100830
  Receipt Date: 20100721
  Transmission Date: 20110219
  Serious: No
  Sender: FDA-Public Use
  Company Number: US-AMGEN-QUU426009

PATIENT
  Sex: Male

DRUGS (3)
  1. NEUPOGEN [Suspect]
     Indication: PRODUCT USED FOR UNKNOWN INDICATION
     Route: 065
     Dates: start: 20100701
  2. PEGASYS [Suspect]
     Route: 058
     Dates: start: 20100507
  3. COPEGUS [Suspect]
     Route: 048
     Dates: start: 20100507

REACTIONS (1)
  - PAIN IN EXTREMITY [None]
